FAERS Safety Report 18361005 (Version 5)
Quarter: 2020Q4

REPORT INFORMATION
  Report Type: Report from Study
  Country: US (occurrence: US)
  Receive Date: 20201008
  Receipt Date: 20201027
  Transmission Date: 20210114
  Serious: Yes (Death, Life-Threatening, Hospitalization)
  Sender: FDA-Public Use
  Company Number: US-SA-2019SA032681

PATIENT

DRUGS (59)
  1. METOPROLOL SUCCINATE. [Concomitant]
     Active Substance: METOPROLOL SUCCINATE
     Indication: PALPITATIONS
     Dosage: 200 MG, UNK
     Route: 048
     Dates: start: 20171029, end: 20190621
  2. SINEMET [Concomitant]
     Active Substance: CARBIDOPA\LEVODOPA
     Indication: RESTLESS LEGS SYNDROME
     Dosage: 30/300 MG,QD
     Route: 048
     Dates: start: 20120702
  3. VIMPAT [Concomitant]
     Active Substance: LACOSAMIDE
     Indication: MIGRAINE
  4. DIPHENHYDRAMINE [DIPHENHYDRAMINE HYDROCHLORIDE] [Concomitant]
     Active Substance: DIPHENHYDRAMINE HYDROCHLORIDE
     Indication: INSOMNIA
     Dosage: 25 MG, UNK
     Route: 048
     Dates: start: 2016
  5. MOTRIN [Concomitant]
     Active Substance: IBUPROFEN
     Dosage: 600 MG, UNK
     Route: 048
     Dates: start: 201807
  6. LEVOTHYROXINE. [Concomitant]
     Active Substance: LEVOTHYROXINE
     Dosage: 50 UG, TID
     Route: 048
  7. MELATONIN [Concomitant]
     Active Substance: MELATONIN
     Indication: INSOMNIA
     Dosage: 10 MG
     Route: 048
  8. SODIUM CHLORIDE 0.9% [Concomitant]
     Active Substance: SODIUM CHLORIDE
     Dosage: 100 ML
  9. ELIQUIS [Concomitant]
     Active Substance: APIXABAN
     Dosage: 5 MG
     Route: 048
  10. CARBIDOPA-LEVODOPA-B [Concomitant]
     Active Substance: CARBIDOPA\LEVODOPA
     Dosage: 100 MG, TID
     Route: 048
  11. PROVIGIL [Concomitant]
     Active Substance: MODAFINIL
     Indication: CHRONIC FATIGUE SYNDROME
     Dosage: 400 MG, UNK
     Route: 048
     Dates: start: 2001
  12. TOPAMAX [Concomitant]
     Active Substance: TOPIRAMATE
     Indication: MIGRAINE
     Dosage: 50 MG, TID
     Route: 048
  13. PROAIR HFA [Concomitant]
     Active Substance: ALBUTEROL SULFATE
     Dosage: 90 UG
  14. METHYLPREDNISOLONE SODIUM SUCCINATE. [Concomitant]
     Active Substance: METHYLPREDNISOLONE SODIUM SUCCINATE
     Dosage: 60 MG
     Route: 042
  15. CYCLOBENZAPRINE HCL [Concomitant]
     Active Substance: CYCLOBENZAPRINE HYDROCHLORIDE
     Indication: MUSCLE SPASMS
     Dosage: 10 MG, TID
     Route: 048
  16. PROVIGIL [Concomitant]
     Active Substance: MODAFINIL
     Indication: RESTLESS LEGS SYNDROME
  17. AMPYRA [Concomitant]
     Active Substance: DALFAMPRIDINE
     Indication: MULTIPLE SCLEROSIS
     Dosage: 20 MG, UNK
     Route: 048
     Dates: start: 20171116
  18. NASOCORT [Concomitant]
     Active Substance: BUDESONIDE
     Indication: SEASONAL ALLERGY
     Dosage: 2 SPRAY, UNK
     Route: 055
     Dates: start: 2015
  19. AMBIEN [Concomitant]
     Active Substance: ZOLPIDEM TARTRATE
     Indication: CHRONIC FATIGUE SYNDROME
     Dosage: 10 MG, UNK
     Route: 048
     Dates: start: 2018
  20. AZOR [Concomitant]
     Active Substance: AMLODIPINE BESYLATE\OLMESARTAN MEDOXOMIL
     Dosage: 1 TABLET
     Route: 048
  21. PROPOFOL. [Concomitant]
     Active Substance: PROPOFOL
     Dosage: 1000MG/10ML
  22. TOPIRAMATE. [Concomitant]
     Active Substance: TOPIRAMATE
     Dosage: 50 MG, QD
     Route: 048
  23. POTASSIUM CHLORIDE. [Concomitant]
     Active Substance: POTASSIUM CHLORIDE
     Indication: HYPOKALAEMIA
     Dosage: 40 MEQ
     Route: 048
  24. POTASSIUM CHLORIDE. [Concomitant]
     Active Substance: POTASSIUM CHLORIDE
     Dosage: 20 MEQ
     Route: 048
  25. MAGNESIUM SULFATE. [Concomitant]
     Active Substance: MAGNESIUM SULFATE
     Dosage: 4000 MG, PRN
  26. ALEMTUZUMAB [Suspect]
     Active Substance: ALEMTUZUMAB
     Indication: RELAPSING MULTIPLE SCLEROSIS
     Dosage: 12 MG, QD
     Route: 041
     Dates: start: 20190114, end: 20190116
  27. VIMPAT [Concomitant]
     Active Substance: LACOSAMIDE
     Indication: RESTLESS LEGS SYNDROME
     Dosage: 200 MG, UNK
     Route: 048
     Dates: start: 20170928
  28. SULFAMETHOXAZOLE AND TRIMETHOPRIM [Concomitant]
     Active Substance: SULFAMETHOXAZOLE\TRIMETHOPRIM
     Indication: PROPHYLAXIS
     Dosage: UNK, UNK
     Route: 048
     Dates: start: 20190114, end: 20190211
  29. CLARITIN [CLARITHROMYCIN] [Concomitant]
     Active Substance: CLARITHROMYCIN
     Indication: SEASONAL ALLERGY
     Dosage: 10 MG, UNK
     Route: 048
     Dates: start: 2015
  30. LANTUS [Concomitant]
     Active Substance: INSULIN GLARGINE
     Route: 058
  31. ONDANSETROM [ONDANSETRON] [Concomitant]
     Indication: NAUSEA
     Dosage: 4 MG, Q4H
  32. REQUIP [Concomitant]
     Active Substance: ROPINIROLE HYDROCHLORIDE
     Indication: RESTLESS LEGS SYNDROME
     Dosage: 3 MG, UNK
     Route: 048
     Dates: start: 20150425
  33. REFRESH TEARS [Concomitant]
     Active Substance: CARBOXYMETHYLCELLULOSE SODIUM
  34. CARBIDOPA-LEVODOPA-B [Concomitant]
     Active Substance: CARBIDOPA\LEVODOPA
     Dosage: 10 MG, TID
     Route: 048
  35. HYPROMELLOSE [Concomitant]
     Active Substance: HYPROMELLOSES
     Dosage: 15 ML, Q12H, 2 GTT EACH EYE
  36. LEXAPRO [Concomitant]
     Active Substance: ESCITALOPRAM OXALATE
     Indication: DEPRESSION
     Dosage: 20 MG, UNK
     Route: 048
     Dates: start: 2006
  37. MULTIVITAMINS [VITAMINS NOS] [Concomitant]
     Active Substance: VITAMINS
     Dosage: 1 DF, UNK
     Route: 048
     Dates: start: 201707
  38. ZERBAXA [Concomitant]
     Active Substance: CEFTOLOZANE SULFATE\TAZOBACTAM SODIUM
     Dosage: 3 UNK
  39. NOREPINEPHRINE. [Concomitant]
     Active Substance: NOREPINEPHRINE
     Indication: HYPOTENSION
     Dosage: 8 MG
     Route: 042
  40. HUMALOG [Concomitant]
     Active Substance: INSULIN LISPRO
  41. PROTONIX [Concomitant]
     Active Substance: PANTOPRAZOLE SODIUM
     Indication: PROPHYLAXIS
     Dosage: 40 MG, QD
     Route: 048
  42. CITALOPRAM HYDROBROMIDE. [Concomitant]
     Active Substance: CITALOPRAM HYDROBROMIDE
     Dosage: 40 MG, QD
     Route: 048
  43. LUBRIFRESH P.M. [Concomitant]
     Active Substance: MINERAL OIL\PETROLATUM
     Dosage: 1 G, Q6H
  44. ALEMTUZUMAB [Suspect]
     Active Substance: ALEMTUZUMAB
     Dosage: 12 MG, QD
     Route: 041
     Dates: start: 20171106, end: 20171110
  45. AMLODIPINE [Concomitant]
     Active Substance: AMLODIPINE BESYLATE
     Indication: HYPERTENSION
     Dosage: 5/40MG
     Route: 048
     Dates: start: 2011
  46. AZOR [Concomitant]
     Active Substance: AMLODIPINE BESYLATE\OLMESARTAN MEDOXOMIL
     Dosage: 1 TABLET
     Route: 048
  47. DALFAMPRIDINE. [Concomitant]
     Active Substance: DALFAMPRIDINE
     Dosage: 10 MG, QD
     Route: 048
  48. MODAFINIL. [Concomitant]
     Active Substance: MODAFINIL
     Dosage: 200 MG
     Route: 048
  49. METOPROLOL. [Concomitant]
     Active Substance: METOPROLOL
     Indication: ESSENTIAL HYPERTENSION
  50. DEXTROSE. [Concomitant]
     Active Substance: DEXTROSE
     Indication: HYPOGLYCAEMIA
     Dosage: 25 G
     Route: 042
  51. LEVOTHYROXINE SODIUM. [Concomitant]
     Active Substance: LEVOTHYROXINE SODIUM
     Dosage: 50 UG, QD
     Route: 048
  52. OXYCODONE AND ACETAMINOPHEN [Concomitant]
     Active Substance: ACETAMINOPHEN\OXYCODONE HYDROCHLORIDE
     Indication: MULTIPLE SCLEROSIS
     Dosage: UNK, UNK
     Route: 048
     Dates: start: 20120419
  53. ACYCLOVIR [ACICLOVIR] [Concomitant]
     Active Substance: ACYCLOVIR
     Indication: PROPHYLAXIS
     Dosage: 400 MG, UNK
     Route: 048
     Dates: start: 20190114, end: 20190314
  54. ROPINIROLE. [Concomitant]
     Active Substance: ROPINIROLE
     Indication: RESTLESS LEGS SYNDROME
     Dosage: 1 MG
     Route: 048
  55. ONDANSETROM [ONDANSETRON] [Concomitant]
     Indication: VOMITING
  56. ONDANSETROM [ONDANSETRON HYDROCHLORIDE] [Concomitant]
     Indication: NAUSEA
     Dosage: 4 MG, Q4H
     Route: 042
  57. ONDANSETROM [ONDANSETRON HYDROCHLORIDE] [Concomitant]
     Indication: VOMITING
  58. CHLORHEXIDINE GLUCONATE. [Concomitant]
     Active Substance: CHLORHEXIDINE GLUCONATE
     Dosage: 15 ML, Q12H
     Route: 048
  59. METHYLPREDNISOLONE. [Concomitant]
     Active Substance: METHYLPREDNISOLONE
     Dosage: 120 MG
     Route: 042
     Dates: start: 20190516

REACTIONS (23)
  - Hypoxia [Recovered/Resolved]
  - Pleural effusion [Recovered/Resolved]
  - Ejection fraction [Recovered/Resolved]
  - Pneumonia [Recovered/Resolved]
  - Acute respiratory failure [Recovered/Resolved]
  - Chronic obstructive pulmonary disease [Recovered/Resolved]
  - Nausea [Recovered/Resolved]
  - Sepsis [Recovered/Resolved]
  - Pneumonia [Recovered/Resolved]
  - Seizure [Not Recovered/Not Resolved]
  - Respiratory arrest [Fatal]
  - Enterobacter pneumonia [Recovered/Resolved]
  - Hypotension [Recovered/Resolved]
  - Hyperglycaemia [Not Recovered/Not Resolved]
  - Respiratory failure [Recovered/Resolved]
  - Atrial fibrillation [Not Recovered/Not Resolved]
  - Hypokalaemia [Not Recovered/Not Resolved]
  - Hypocalcaemia [Not Recovered/Not Resolved]
  - Type 2 diabetes mellitus [Not Recovered/Not Resolved]
  - Acute respiratory failure [Recovered/Resolved]
  - Chronic respiratory failure [Recovered/Resolved]
  - Cardiac failure congestive [Recovered/Resolved]
  - Anaemia [Not Recovered/Not Resolved]

NARRATIVE: CASE EVENT DATE: 20190114
